FAERS Safety Report 25269892 (Version 1)
Quarter: 2025Q2

REPORT INFORMATION
  Report Type: Spontaneous
  Country: US (occurrence: US)
  Receive Date: 20250505
  Receipt Date: 20250505
  Transmission Date: 20250717
  Serious: Yes (Other)
  Sender: AMGEN
  Company Number: US-AMGEN-USASP2025085115

PATIENT
  Age: 72 Year
  Sex: Female

DRUGS (10)
  1. PREDNISONE [Suspect]
     Active Substance: PREDNISONE
     Indication: Retinal occlusive vasculitis
     Dosage: 1 MILLIGRAM/KILOGRAM, QD
     Route: 048
  2. PREDNISONE [Suspect]
     Active Substance: PREDNISONE
     Dosage: 10 MILLIGRAM, QD
     Route: 048
  3. BEVACIZUMAB [Suspect]
     Active Substance: BEVACIZUMAB
     Indication: Neovascular age-related macular degeneration
     Route: 065
  4. AFLIBERCEPT [Concomitant]
     Active Substance: AFLIBERCEPT
     Indication: Neovascular age-related macular degeneration
  5. AFLIBERCEPT [Concomitant]
     Active Substance: AFLIBERCEPT
  6. METHIMAZOLE [Concomitant]
     Active Substance: METHIMAZOLE
  7. VANCOMYCIN [Concomitant]
     Active Substance: VANCOMYCIN
  8. CEFTAZIDIME [Concomitant]
     Active Substance: CEFTAZIDIME
  9. DEXAMETHASONE [Concomitant]
     Active Substance: DEXAMETHASONE
  10. PREDNISOLONE [Concomitant]
     Active Substance: PREDNISOLONE
     Route: 061

REACTIONS (5)
  - Neovascular age-related macular degeneration [Unknown]
  - Retinal occlusive vasculitis [Unknown]
  - Cataract [Unknown]
  - Drug effective for unapproved indication [Unknown]
  - Off label use [Unknown]
